FAERS Safety Report 11236530 (Version 1)
Quarter: 2015Q3

REPORT INFORMATION
  Report Type: Spontaneous
  Country: GB (occurrence: GB)
  Receive Date: 20150702
  Receipt Date: 20150702
  Transmission Date: 20151125
  Serious: Yes (Hospitalization)
  Sender: FDA-Public Use
  Company Number: GB-AMGEN-GBRSP2015063547

PATIENT
  Age: 90 Year
  Sex: Male

DRUGS (1)
  1. ARANESP [Suspect]
     Active Substance: DARBEPOETIN ALFA
     Indication: PRODUCT USED FOR UNKNOWN INDICATION
     Dosage: 20MCG/0.5 ML
     Route: 065

REACTIONS (4)
  - Dyspnoea [Unknown]
  - Fluid retention [Unknown]
  - Swelling [Unknown]
  - Condition aggravated [Unknown]
